FAERS Safety Report 24005241 (Version 1)
Quarter: 2024Q2

REPORT INFORMATION
  Report Type: Spontaneous
  Country: US (occurrence: None)
  Receive Date: 20240621
  Receipt Date: 20240621
  Transmission Date: 20240715
  Serious: Yes (Life-Threatening, Disabling)
  Sender: FDA-Public Use
  Company Number: None

PATIENT
  Age: 57 Year
  Sex: Male
  Weight: 97.52 kg

DRUGS (3)
  1. CYCLOBENZAPRINE HYDROCHLORIDE [Suspect]
     Active Substance: CYCLOBENZAPRINE HYDROCHLORIDE
     Indication: Arthralgia
     Dosage: 30 PILLS 3 TIMES A DAY   1 PILL BY MOUTH ??BEST ESTIMATE OF DURATION.?1 PILL AT BEDTIME CAUSED  15 P
     Route: 048
     Dates: start: 20220603, end: 20220604
  2. CYCLOBENZAPRINE HYDROCHLORIDE [Suspect]
     Active Substance: CYCLOBENZAPRINE HYDROCHLORIDE
     Indication: Insomnia
  3. CYCLOBENZAPRINE HYDROCHLORIDE [Suspect]
     Active Substance: CYCLOBENZAPRINE HYDROCHLORIDE
     Indication: Bursa injury

REACTIONS (3)
  - Pain [None]
  - Muscle atrophy [None]
  - Bedridden [None]

NARRATIVE: CASE EVENT DATE: 20220604
